FAERS Safety Report 14088473 (Version 8)
Quarter: 2018Q1

REPORT INFORMATION
  Report Type: Spontaneous
  Country: US (occurrence: US)
  Receive Date: 20171013
  Receipt Date: 20180223
  Transmission Date: 20180508
  Serious: No
  Sender: FDA-Public Use
  Company Number: US-ACTELION-A-NJ2017-160934

PATIENT
  Age: 65 Year
  Sex: Female
  Weight: 123.36 kg

DRUGS (8)
  1. VENTAVIS [Suspect]
     Active Substance: ILOPROST
     Dosage: 2.5 MCG, 4-6 X/DAY
     Route: 055
  2. UPTRAVI [Suspect]
     Active Substance: SELEXIPAG
     Dosage: 600 MCG, BID
     Route: 048
  3. UPTRAVI [Suspect]
     Active Substance: SELEXIPAG
     Dosage: 800 MCG, BID
     Route: 048
     Dates: start: 20171027, end: 201801
  4. VENTAVIS [Suspect]
     Active Substance: ILOPROST
     Indication: PULMONARY ARTERIAL HYPERTENSION
     Dosage: 2.5 MCG, 6-9 X/DAY
     Route: 055
  5. UPTRAVI [Suspect]
     Active Substance: SELEXIPAG
     Dosage: 1000 MCG IN AM, 800 MCG IN PM
     Route: 048
  6. LETAIRIS [Suspect]
     Active Substance: AMBRISENTAN
     Indication: PRODUCT USED FOR UNKNOWN INDICATION
     Dosage: 5 MG, QD
     Route: 065
     Dates: start: 20161209
  7. UPTRAVI [Suspect]
     Active Substance: SELEXIPAG
     Dosage: 1000 MCG, BID
     Route: 048
     Dates: start: 20071117
  8. UPTRAVI [Suspect]
     Active Substance: SELEXIPAG
     Indication: PULMONARY ARTERIAL HYPERTENSION
     Dosage: 200 MCG, BID
     Route: 048

REACTIONS (30)
  - Hot flush [Not Recovered/Not Resolved]
  - Fluid retention [Not Recovered/Not Resolved]
  - Nausea [Unknown]
  - Condition aggravated [Unknown]
  - Pain in jaw [Unknown]
  - Eustachian tube disorder [Unknown]
  - Drug dose omission [Unknown]
  - Oedema peripheral [Not Recovered/Not Resolved]
  - Menstrual disorder [Unknown]
  - Therapy cessation [Unknown]
  - Unevaluable event [Not Recovered/Not Resolved]
  - Influenza [Unknown]
  - Asthenia [Unknown]
  - Back pain [Unknown]
  - Pain [Recovering/Resolving]
  - Balance disorder [Unknown]
  - Pain in extremity [Not Recovered/Not Resolved]
  - Frequent bowel movements [Recovering/Resolving]
  - Fatigue [Unknown]
  - Headache [Not Recovered/Not Resolved]
  - Muscle spasms [Not Recovered/Not Resolved]
  - Blood glucose decreased [Unknown]
  - Insomnia [Unknown]
  - Dysgeusia [Unknown]
  - Renal disorder [Not Recovered/Not Resolved]
  - Vertigo [Unknown]
  - Pollakiuria [Not Recovered/Not Resolved]
  - Discomfort [Unknown]
  - Swelling [Unknown]
  - Abdominal discomfort [Unknown]
